FAERS Safety Report 25888653 (Version 1)
Quarter: 2025Q4

REPORT INFORMATION
  Report Type: Spontaneous
  Country: GB (occurrence: GB)
  Receive Date: 20251007
  Receipt Date: 20251007
  Transmission Date: 20260117
  Serious: Yes (Hospitalization)
  Sender: RECORDATI
  Company Number: GB-ORPHANEU-2025006846

PATIENT
  Age: 78 Year
  Sex: Male

DRUGS (2)
  1. OSILODROSTAT [Suspect]
     Active Substance: OSILODROSTAT
     Indication: Product used for unknown indication
     Dosage: 2 MILLIGRAM, BID
     Dates: start: 20250802, end: 202508
  2. OSILODROSTAT [Suspect]
     Active Substance: OSILODROSTAT
     Dosage: 2 MILLIGRAM, BID
     Dates: start: 202508, end: 20250820

REACTIONS (4)
  - Skin infection [Not Recovered/Not Resolved]
  - Soft tissue infection [Not Recovered/Not Resolved]
  - COVID-19 [Not Recovered/Not Resolved]
  - Sepsis [Unknown]

NARRATIVE: CASE EVENT DATE: 20250101
